FAERS Safety Report 5743935-X (Version None)
Quarter: 2008Q2

REPORT INFORMATION
  Report Type: 
  Country: None (occurrence: None)
  Receive Date: 20080520
  Receipt Date: 20080508
  Transmission Date: 20081010
  Serious: No
  Sender: FDA-Public Use
  Company Number: GB-PFIZER INC-2007104492

PATIENT
  Age: 1 Year
  Sex: Female

DRUGS (5)
  1. PHENYTOIN [Suspect]
     Indication: CONVULSION
  2. QUININE [Suspect]
     Indication: PLASMODIUM FALCIPARUM INFECTION
     Dosage: TEXT:10 MG/KG
  3. PYRIMETHAMINE TAB [Concomitant]
  4. TOPIRAMATE [Concomitant]
  5. VALPROATE SODIUM [Concomitant]

REACTIONS (1)
  - NO ADVERSE EVENT [None]
